FAERS Safety Report 17285093 (Version 1)
Quarter: 2020Q1

REPORT INFORMATION
  Report Type: Spontaneous
  Country: ZA (occurrence: ZA)
  Receive Date: 20200117
  Receipt Date: 20200117
  Transmission Date: 20200409
  Serious: Yes (Other)
  Sender: FDA-Public Use
  Company Number: ZA-JACOBUS PHARMACEUTICAL COMPANY, INC.-2079150

PATIENT
  Age: 30 Year
  Sex: Male

DRUGS (6)
  1. MOXIFLOXACIN. [Suspect]
     Active Substance: MOXIFLOXACIN
     Dates: start: 20180824
  2. PYRAZINAMIDE. [Suspect]
     Active Substance: PYRAZINAMIDE
     Dates: start: 20180824
  3. CAPREOMYCIN [Suspect]
     Active Substance: CAPREOMYCIN
     Dates: start: 20180913, end: 201809
  4. LINEZOLID. [Suspect]
     Active Substance: LINEZOLID
     Dates: start: 20180824
  5. PASER [Suspect]
     Active Substance: AMINOSALICYLIC ACID
     Indication: TUBERCULOSIS
     Dates: start: 20180824
  6. DELAMANID [Suspect]
     Active Substance: DELAMANID

REACTIONS (1)
  - Ototoxicity [None]
